FAERS Safety Report 4728488-7 (Version None)
Quarter: 2005Q3

REPORT INFORMATION
  Report Type: 
  Country: None (occurrence: None)
  Receive Date: 20050729
  Receipt Date: 20041005
  Transmission Date: 20060218
  Serious: No
  Sender: FDA-Public Use
  Company Number: US-GLAXOSMITHKLINE-A0528540A

PATIENT
  Age: 66 Year
  Sex: Female

DRUGS (7)
  1. ZANTAC [Suspect]
     Dosage: 300MG TWICE PER DAY
     Route: 048
     Dates: start: 20040930, end: 20041001
  2. XANAX [Concomitant]
  3. WELLBUTRIN [Concomitant]
  4. RESTORIL [Concomitant]
  5. ATROVENT [Concomitant]
  6. ASTELIN [Concomitant]
  7. MULTI-VITAMIN [Concomitant]

REACTIONS (4)
  - ERUCTATION [None]
  - GASTROOESOPHAGEAL REFLUX DISEASE [None]
  - MUSCULOSKELETAL PAIN [None]
  - NAUSEA [None]
